FAERS Safety Report 17791714 (Version 1)
Quarter: 2020Q2

REPORT INFORMATION
  Report Type: Spontaneous
  Country: JP (occurrence: JP)
  Receive Date: 20200515
  Receipt Date: 20200515
  Transmission Date: 20200714
  Serious: Yes (Life-Threatening, Other)
  Sender: FDA-Public Use
  Company Number: JP-ACCORD-181406

PATIENT
  Age: 62 Year
  Sex: Female

DRUGS (3)
  1. CARBOPLATIN. [Suspect]
     Active Substance: CARBOPLATIN
     Indication: SMALL CELL CARCINOMA OF THE CERVIX
     Dosage: AUC-6
  2. PACLITAXEL. [Suspect]
     Active Substance: PACLITAXEL
     Indication: SMALL CELL CARCINOMA OF THE CERVIX
  3. BEVACIZUMAB. [Suspect]
     Active Substance: BEVACIZUMAB
     Indication: SMALL CELL CARCINOMA OF THE CERVIX

REACTIONS (3)
  - Pancytopenia [Unknown]
  - Protein urine [Unknown]
  - Hypertension [Unknown]
